FAERS Safety Report 18030838 (Version 2)
Quarter: 2020Q3

REPORT INFORMATION
  Report Type: Report from Study
  Country: None (occurrence: BR)
  Receive Date: 20200715
  Receipt Date: 20200730
  Transmission Date: 20201103
  Serious: Yes (Hospitalization, Other)
  Sender: FDA-Public Use
  Company Number: BR-ABBVIE-20K-020-3456459-00

PATIENT
  Age: 30 Year
  Sex: Male
  Weight: 100 kg

DRUGS (12)
  1. PREDNISOLONE. [Concomitant]
     Active Substance: PREDNISOLONE
     Indication: EYE INFLAMMATION
     Route: 048
     Dates: start: 202005
  2. PRED FORT [Concomitant]
     Active Substance: PREDNISOLONE ACETATE
     Indication: EYE INFLAMMATION
     Dosage: 4 TIMES A DAY AT THE LEFT EYE
     Route: 047
     Dates: start: 20200610
  3. EYLIA [Concomitant]
     Active Substance: AFLIBERCEPT
     Indication: RETINAL DETACHMENT
     Route: 047
  4. EYLIA [Concomitant]
     Active Substance: AFLIBERCEPT
     Indication: ANGIOPATHY
     Route: 047
     Dates: start: 20200623
  5. HUMIRA [Suspect]
     Active Substance: ADALIMUMAB
     Indication: UVEITIS
     Route: 058
     Dates: start: 20200403, end: 20200626
  6. ATROPINE. [Concomitant]
     Active Substance: ATROPINE
     Indication: EYE INFLAMMATION
     Dosage: 2 TIMES EVERY DAY AT THE LEFT EYE
     Route: 047
     Dates: start: 202001
  7. ADDERA CAL [Concomitant]
     Indication: VITAMIN SUPPLEMENTATION
     Route: 048
  8. AZORGA [Concomitant]
     Active Substance: BRINZOLAMIDE\TIMOLOL MALEATE
     Indication: EYE DISORDER
     Dosage: BOTH EYES EVERY 12 HOURS
     Route: 047
     Dates: start: 201907
  9. AVASTIN [Concomitant]
     Active Substance: BEVACIZUMAB
     Indication: RETINAL DETACHMENT
     Route: 047
  10. INILOK [Concomitant]
     Indication: PROPHYLAXIS
     Dosage: 1 TABLET AT JEJUM
     Route: 048
     Dates: start: 201907
  11. ADDERA CAL [Concomitant]
     Indication: MINERAL SUPPLEMENTATION
  12. AVASTIN [Concomitant]
     Active Substance: BEVACIZUMAB
     Indication: ANGIOPATHY

REACTIONS (11)
  - Injection site discolouration [Recovering/Resolving]
  - Injection site pain [Unknown]
  - Intraocular pressure increased [Recovered/Resolved]
  - Mental disorder [Recovering/Resolving]
  - Device issue [Unknown]
  - Product administered at inappropriate site [Unknown]
  - Eye discharge [Unknown]
  - Anxiety [Recovering/Resolving]
  - Incorrect dose administered [Unknown]
  - Uveitis [Not Recovered/Not Resolved]
  - Therapeutic product effect incomplete [Not Recovered/Not Resolved]

NARRATIVE: CASE EVENT DATE: 2020
